FAERS Safety Report 18218027 (Version 4)
Quarter: 2020Q4

REPORT INFORMATION
  Report Type: Spontaneous
  Country: US (occurrence: US)
  Receive Date: 20200901
  Receipt Date: 20201020
  Transmission Date: 20210113
  Serious: No
  Sender: FDA-Public Use
  Company Number: US-PFIZER INC-2020331961

PATIENT
  Age: 13 Year
  Sex: Male

DRUGS (1)
  1. GENOTROPIN [Suspect]
     Active Substance: SOMATROPIN
     Dosage: 1.8 MG
     Dates: start: 20200825

REACTIONS (2)
  - Drug dose omission by device [Unknown]
  - Device breakage [Unknown]
